FAERS Safety Report 9068486 (Version 2)
Quarter: 2013Q1

REPORT INFORMATION
  Report Type: Spontaneous
  Country: DE (occurrence: DE)
  Receive Date: 20130206
  Receipt Date: 20130326
  Transmission Date: 20140127
  Serious: Yes (Disabling, Other)
  Sender: FDA-Public Use
  Company Number: DE-ACTELION-A-CH2013-78607

PATIENT
  Age: 63 Year
  Sex: Female
  Weight: 55.6 kg

DRUGS (5)
  1. ZAVESCA [Suspect]
     Indication: NIEMANN-PICK DISEASE
     Dosage: 200 MG, TID
     Route: 048
     Dates: end: 20121030
  2. ZAVESCA [Suspect]
     Dosage: 100 MG, BID
     Route: 048
     Dates: start: 20120704, end: 2012
  3. CITALOPRAM [Concomitant]
     Dosage: UNK
     Dates: start: 20120203
  4. MIRTAZAPIN [Concomitant]
     Dosage: UNK
     Dates: start: 20110415
  5. QUETIAPINE [Concomitant]
     Dosage: UNK
     Dates: start: 20110714

REACTIONS (9)
  - Tremor [Recovered/Resolved with Sequelae]
  - Asterixis [Recovered/Resolved with Sequelae]
  - Dementia [Recovered/Resolved with Sequelae]
  - Niemann-Pick disease [Unknown]
  - Condition aggravated [Unknown]
  - Walking disability [Recovered/Resolved with Sequelae]
  - Fall [Recovered/Resolved with Sequelae]
  - Aphasia [Unknown]
  - Dysphagia [Unknown]
